FAERS Safety Report 9267519 (Version 6)
Quarter: 2014Q2

REPORT INFORMATION
  Report Type: Spontaneous
  Country: US (occurrence: US)
  Receive Date: 20130502
  Receipt Date: 20140523
  Transmission Date: 20141212
  Serious: Yes (Other)
  Sender: FDA-Public Use
  Company Number: US-009507513-1305USA000880

PATIENT
  Sex: Male
  Weight: 81.81 kg

DRUGS (4)
  1. PROPECIA [Suspect]
     Indication: ALOPECIA
     Dosage: 1 MG, QD
     Route: 048
     Dates: start: 20020522, end: 20040218
  2. PROPECIA [Suspect]
     Dosage: 1 MG, QD
     Route: 048
     Dates: start: 20040328
  3. PROPECIA [Suspect]
     Dosage: 1 MG, QD
     Route: 048
     Dates: start: 20050615, end: 20060408
  4. SAW PALMETTO [Concomitant]
     Indication: ALOPECIA

REACTIONS (31)
  - Malignant melanoma [Unknown]
  - Hypersensitivity [Recovered/Resolved]
  - Anxiety [Not Recovered/Not Resolved]
  - Headache [Unknown]
  - Fibrous histiocytoma [Unknown]
  - Melanocytic naevus [Unknown]
  - Melanocytic naevus [Unknown]
  - Melanocytic naevus [Unknown]
  - Melanocytic naevus [Unknown]
  - Paronychia [Unknown]
  - Stress [Unknown]
  - Nausea [Unknown]
  - Road traffic accident [Unknown]
  - Back pain [Unknown]
  - Hypoaesthesia [Unknown]
  - Genital lesion [Recovered/Resolved]
  - Stress at work [Unknown]
  - Oral herpes [Unknown]
  - Penile pain [Unknown]
  - Dysuria [Unknown]
  - Genital herpes [Unknown]
  - Abdominal distension [Unknown]
  - Photodermatosis [Unknown]
  - Lentigo [Unknown]
  - Joint injury [Unknown]
  - Road traffic accident [Unknown]
  - Muscle strain [Recovering/Resolving]
  - Aphthous stomatitis [Recovered/Resolved]
  - Sexual dysfunction [Not Recovered/Not Resolved]
  - Libido decreased [Unknown]
  - Depression [Not Recovered/Not Resolved]
